FAERS Safety Report 10235220 (Version 1)
Quarter: 2014Q2

REPORT INFORMATION
  Report Type: Spontaneous
  Country: US (occurrence: US)
  Receive Date: 20140613
  Receipt Date: 20140613
  Transmission Date: 20141212
  Serious: Yes (Other)
  Sender: FDA-Public Use
  Company Number: US-BAYER-2014-088145

PATIENT
  Age: 19 Year
  Sex: Female

DRUGS (3)
  1. YAZ [Suspect]
  2. YASMIN [Suspect]
  3. IBUPROFEN [Concomitant]
     Indication: PAIN
     Dosage: 800 MG, UNK

REACTIONS (2)
  - Deep vein thrombosis [None]
  - Pulmonary embolism [None]
